FAERS Safety Report 11211306 (Version 1)
Quarter: 2015Q2

REPORT INFORMATION
  Report Type: Spontaneous
  Country: IT (occurrence: None)
  Receive Date: 20150619
  Receipt Date: 20150619
  Transmission Date: 20150821
  Serious: Yes (Life-Threatening)
  Sender: FDA-Public Use
  Company Number: FK201502863

PATIENT
  Age: 76 Year
  Sex: Male
  Weight: 100 kg

DRUGS (3)
  1. PROPOFOL 1% MCT FRESENIUS (PROPOFOL) (PROPOFOL) [Suspect]
     Active Substance: PROPOFOL
     Indication: INDUCTION OF ANAESTHESIA
     Route: 041
     Dates: start: 20150603, end: 20150603
  2. REMIFENTANIL HYDROCHLORIDE (REMIFENTANIL HYDROCHLORIDE) [Concomitant]
  3. AUGMENTIN [Concomitant]
     Active Substance: AMOXICILLIN\CLAVULANATE POTASSIUM

REACTIONS (8)
  - Metabolic acidosis [None]
  - Cardiovascular insufficiency [None]
  - Dialysis [None]
  - Lactic acidosis [None]
  - Infusion related reaction [None]
  - Hypokalaemia [None]
  - Rhabdomyolysis [None]
  - Blood creatine phosphokinase increased [None]

NARRATIVE: CASE EVENT DATE: 20150603
